FAERS Safety Report 9869556 (Version 1)
Quarter: 2014Q1

REPORT INFORMATION
  Report Type: Spontaneous
  Country: AU (occurrence: None)
  Receive Date: 20140203
  Receipt Date: 20140203
  Transmission Date: 20141002
  Serious: Yes (Other)
  Sender: FDA-Public Use
  Company Number: SYM-2014-15703

PATIENT
  Sex: Male

DRUGS (4)
  1. BUPROPION HYDROCHLORIDE [Suspect]
     Indication: PRODUCT USED FOR UNKNOWN INDICATION
  2. FLUOXETINE [Suspect]
     Indication: PRODUCT USED FOR UNKNOWN INDICATION
  3. TAPENTADOL [Suspect]
     Indication: PRODUCT USED FOR UNKNOWN INDICATION
  4. TIZANIDINE [Suspect]
     Indication: PRODUCT USED FOR UNKNOWN INDICATION

REACTIONS (5)
  - Aggression [None]
  - Serotonin syndrome [None]
  - Hypertension [None]
  - Depersonalisation [None]
  - Chills [None]
